FAERS Safety Report 24226187 (Version 1)
Quarter: 2024Q3

REPORT INFORMATION
  Report Type: Spontaneous
  Country: US (occurrence: US)
  Receive Date: 20240820
  Receipt Date: 20240820
  Transmission Date: 20241017
  Serious: Yes (Hospitalization, Other)
  Sender: ALEMBIC
  Company Number: US-ALEMBIC PHARMACUETICALS LIMITED-2024SCAL001110

PATIENT

DRUGS (26)
  1. DULOXETINE HYDROCHLORIDE [Suspect]
     Active Substance: DULOXETINE HYDROCHLORIDE
     Indication: Major depression
     Dosage: 60 MILLIGRAM, TID
     Route: 065
  2. DULOXETINE HYDROCHLORIDE [Suspect]
     Active Substance: DULOXETINE HYDROCHLORIDE
     Indication: Anxiety
     Dosage: 30 MILLIGRAM, TID
     Route: 065
  3. DULOXETINE HYDROCHLORIDE [Suspect]
     Active Substance: DULOXETINE HYDROCHLORIDE
     Dosage: 60 MILLIGRAM, QD
     Route: 065
  4. DULOXETINE HYDROCHLORIDE [Suspect]
     Active Substance: DULOXETINE HYDROCHLORIDE
     Dosage: 90 MILLIGRAM, QD
     Route: 065
  5. KETAMINE [Suspect]
     Active Substance: KETAMINE
     Indication: Anxiety
     Dosage: 100 MG
     Route: 042
  6. KETAMINE [Suspect]
     Active Substance: KETAMINE
     Indication: Major depression
  7. MIRTAZAPINE [Suspect]
     Active Substance: MIRTAZAPINE
     Indication: Major depression
     Dosage: 15 MILLIGRAM, QD
     Route: 065
  8. MIRTAZAPINE [Suspect]
     Active Substance: MIRTAZAPINE
     Dosage: 30 MILLIGRAM, QD
     Route: 065
  9. RISPERIDONE [Suspect]
     Active Substance: RISPERIDONE
     Indication: Delirium
     Dosage: 0.5 MILLIGRAM, QD
  10. RISPERIDONE [Suspect]
     Active Substance: RISPERIDONE
     Dosage: 1.5 MILLIGRAM, QD
     Route: 065
  11. CARIPRAZINE [Suspect]
     Active Substance: CARIPRAZINE
     Indication: Major depression
     Dosage: UNK
     Route: 065
  12. CARIPRAZINE [Suspect]
     Active Substance: CARIPRAZINE
     Indication: Anxiety
  13. LORAZEPAM [Concomitant]
     Active Substance: LORAZEPAM
     Indication: Anxiety
     Dosage: 0.5 MILLIGRAM, QD
     Route: 042
  14. LORAZEPAM [Concomitant]
     Active Substance: LORAZEPAM
     Dosage: 0.5 MILLIGRAM, BID
     Route: 042
  15. LORAZEPAM [Concomitant]
     Active Substance: LORAZEPAM
     Dosage: 1 MILLIGRAM, TID
     Route: 042
  16. LORAZEPAM [Concomitant]
     Active Substance: LORAZEPAM
     Dosage: 2 MILLIGRAM, QD DIVIDED DOSES (0.5 MG IN THE MORNING, 1 MG IN THE AFTERNOON AND 0.5 MG AT NIGHT)DAY
     Route: 042
  17. METHOHEXITAL [Concomitant]
     Active Substance: METHOHEXITAL
     Indication: Induction of anaesthesia
     Dosage: UNK
     Route: 065
  18. METHOHEXITAL [Concomitant]
     Active Substance: METHOHEXITAL
     Indication: Electroconvulsive therapy
  19. ALPRAZOLAM [Concomitant]
     Active Substance: ALPRAZOLAM
     Indication: Anxiety
     Dosage: 0.25 MILLIGRAM, TID
     Route: 065
  20. ALPRAZOLAM [Concomitant]
     Active Substance: ALPRAZOLAM
     Dosage: 0.5 MILLIGRAM, TID
     Route: 065
  21. ALPRAZOLAM [Concomitant]
     Active Substance: ALPRAZOLAM
     Dosage: 0.25 MILLIGRAM, TID
     Route: 065
  22. SUCCINYLCHOLINE [Concomitant]
     Active Substance: SUCCINYLCHOLINE
     Indication: Induction of anaesthesia
     Dosage: 120 MILLIGRAM
     Route: 065
  23. SUCCINYLCHOLINE [Concomitant]
     Active Substance: SUCCINYLCHOLINE
     Indication: Electroconvulsive therapy
     Dosage: 80 MILLIGRAM
     Route: 065
  24. SIMVASTATIN [Concomitant]
     Active Substance: SIMVASTATIN
     Indication: Hyperlipidaemia
     Dosage: 40 MG, QD AT BEDTIME
     Route: 065
  25. LEVOTHYROXINE [Concomitant]
     Active Substance: LEVOTHYROXINE\LEVOTHYROXINE SODIUM
     Indication: Hypothyroidism
     Dosage: 75 MICROGRAM PER DAY
     Route: 065
  26. LOSARTAN [Concomitant]
     Active Substance: LOSARTAN\LOSARTAN POTASSIUM
     Indication: Hypertension
     Dosage: 40 MG, QD
     Route: 065

REACTIONS (23)
  - Pneumonia aspiration [Recovered/Resolved]
  - Lung infiltration [Recovered/Resolved]
  - Serotonin syndrome [Recovering/Resolving]
  - Delirium [Recovering/Resolving]
  - Encephalopathy [Recovering/Resolving]
  - Tremor [Recovering/Resolving]
  - Hyperthermia [Recovering/Resolving]
  - Blood pressure systolic increased [Recovering/Resolving]
  - Mental status changes [Recovering/Resolving]
  - Hypertonia [Recovering/Resolving]
  - Blood creatine phosphokinase increased [Recovering/Resolving]
  - Blood lactic acid increased [Recovering/Resolving]
  - Blood bicarbonate decreased [Recovering/Resolving]
  - Muscle rigidity [Recovering/Resolving]
  - White blood cell count increased [Recovering/Resolving]
  - Delusion [Recovering/Resolving]
  - Confusional state [Recovering/Resolving]
  - Disorientation [Recovering/Resolving]
  - Blood pH decreased [Recovering/Resolving]
  - Pyrexia [Recovering/Resolving]
  - Hyperreflexia [Recovering/Resolving]
  - Drug interaction [Recovering/Resolving]
  - Drug ineffective [Unknown]
